FAERS Safety Report 17431072 (Version 1)
Quarter: 2020Q1

REPORT INFORMATION
  Report Type: Spontaneous
  Country: US (occurrence: US)
  Receive Date: 20200217
  Receipt Date: 20200217
  Transmission Date: 20200409
  Serious: No
  Sender: FDA-Public Use
  Company Number: None

PATIENT
  Age: 24 Year
  Sex: Female
  Weight: 76.5 kg

DRUGS (4)
  1. KETOROLAC 30MG IV [Concomitant]
     Dates: start: 20200205
  2. BENADRYL 25MG PO [Concomitant]
     Dates: start: 20200205
  3. SODIUM CHLORIDE 500ML IV [Concomitant]
     Dates: start: 20200205
  4. GAMUNEX-C [Suspect]
     Active Substance: HUMAN IMMUNOGLOBULIN G
     Indication: CHRONIC INFLAMMATORY DEMYELINATING POLYRADICULONEUROPATHY
     Dosage: ?          OTHER FREQUENCY:WEEKLY;?
     Route: 041
     Dates: start: 20200205, end: 20200212

REACTIONS (1)
  - Migraine [None]

NARRATIVE: CASE EVENT DATE: 20200205
